FAERS Safety Report 10330286 (Version 6)
Quarter: 2014Q4

REPORT INFORMATION
  Report Type: Spontaneous
  Country: CA (occurrence: CA)
  Receive Date: 20140722
  Receipt Date: 20141219
  Transmission Date: 20150528
  Serious: Yes (Hospitalization)
  Sender: FDA-Public Use
  Company Number: CA-ROCHE-1434875

PATIENT
  Age: 56 Year
  Sex: Male

DRUGS (5)
  1. XOLAIR [Suspect]
     Active Substance: OMALIZUMAB
     Route: 058
     Dates: start: 20130501
  2. XOLAIR [Suspect]
     Active Substance: OMALIZUMAB
     Indication: ASTHMA
     Route: 058
     Dates: start: 20121023
  3. XOLAIR [Suspect]
     Active Substance: OMALIZUMAB
     Route: 058
     Dates: start: 20140401
  4. XOLAIR [Suspect]
     Active Substance: OMALIZUMAB
     Route: 065
     Dates: start: 20140820
  5. XOLAIR [Suspect]
     Active Substance: OMALIZUMAB
     Route: 058
     Dates: start: 20130417

REACTIONS (24)
  - Pyrexia [Unknown]
  - Infection [Recovered/Resolved]
  - Choking [Unknown]
  - Incorrect dose administered [Unknown]
  - Hypokinesia [Unknown]
  - Heart rate increased [Unknown]
  - Sleep apnoea syndrome [Unknown]
  - Nasopharyngitis [Unknown]
  - Gastroenteritis viral [Unknown]
  - Sputum discoloured [Unknown]
  - Arthritis [Unknown]
  - Pruritus [Unknown]
  - Cough [Unknown]
  - Malaise [Unknown]
  - Sinus congestion [Unknown]
  - Weight decreased [Not Recovered/Not Resolved]
  - Fatigue [Unknown]
  - Blood pressure increased [Unknown]
  - Lipoma [Unknown]
  - Nodule [Unknown]
  - Dyspnoea [Unknown]
  - Arthralgia [Unknown]
  - Depression [Unknown]
  - Pain [Unknown]

NARRATIVE: CASE EVENT DATE: 20121025
